FAERS Safety Report 18185964 (Version 1)
Quarter: 2020Q3

REPORT INFORMATION
  Report Type: Spontaneous
  Country: US (occurrence: US)
  Receive Date: 20200824
  Receipt Date: 20200824
  Transmission Date: 20201103
  Serious: No
  Sender: FDA-Public Use
  Company Number: US-ALLERGAN-1938391US

PATIENT
  Age: 38 Year
  Sex: Male

DRUGS (7)
  1. ALBUTEROL. [Concomitant]
     Active Substance: ALBUTEROL
     Indication: ASTHMA
     Route: 055
  2. FETZIMA [Interacting]
     Active Substance: LEVOMILNACIPRAN HYDROCHLORIDE
     Dosage: UNK
     Dates: start: 20190620, end: 201908
  3. GABAPENTIN. [Interacting]
     Active Substance: GABAPENTIN
     Indication: PAIN
  4. FETZIMA [Interacting]
     Active Substance: LEVOMILNACIPRAN HYDROCHLORIDE
     Indication: ANXIETY
     Dosage: 40 MG
     Dates: start: 201909, end: 20191008
  5. SLOVENT INHALER [Concomitant]
     Indication: ASTHMA
     Route: 055
  6. FETZIMA [Suspect]
     Active Substance: LEVOMILNACIPRAN HYDROCHLORIDE
     Indication: DEPRESSION
     Dosage: 20 MG
     Dates: start: 20191008
  7. FETZIMA [Interacting]
     Active Substance: LEVOMILNACIPRAN HYDROCHLORIDE
     Dosage: 80 MG
     Dates: start: 201908

REACTIONS (4)
  - Orthostatic hypotension [Recovering/Resolving]
  - Off label use [Unknown]
  - Drug interaction [Unknown]
  - Expired product administered [Unknown]

NARRATIVE: CASE EVENT DATE: 20190620
